FAERS Safety Report 18136620 (Version 2)
Quarter: 2020Q4

REPORT INFORMATION
  Report Type: Report from Study
  Country: US (occurrence: US)
  Receive Date: 20200811
  Receipt Date: 20201222
  Transmission Date: 20210113
  Serious: No
  Sender: FDA-Public Use
  Company Number: NVSC2020US215031

PATIENT
  Sex: Female

DRUGS (1)
  1. GLATOPA [Suspect]
     Active Substance: GLATIRAMER ACETATE
     Indication: PRODUCT USED FOR UNKNOWN INDICATION
     Dosage: 40 MG
     Route: 065

REACTIONS (3)
  - Maternal exposure during pregnancy [Unknown]
  - Normal newborn [Unknown]
  - Product availability issue [Unknown]
